FAERS Safety Report 4361843-6 (Version None)
Quarter: 2004Q2

REPORT INFORMATION
  Report Type: 
  Country: None (occurrence: None)
  Receive Date: 20040521
  Receipt Date: 20040323
  Transmission Date: 20050107
  Serious: No
  Sender: FDA-Public Use
  Company Number: US-GLAXOSMITHKLINE-A0504099A

PATIENT
  Age: 41 Year
  Sex: Female

DRUGS (6)
  1. WELLBUTRIN [Suspect]
     Indication: DEPRESSION
     Dosage: 300MG TWICE PER DAY
     Route: 048
     Dates: start: 20040309
  2. SYNTHROID [Concomitant]
  3. OXYCONTIN [Concomitant]
  4. AMITRIPTYLINE HCL [Concomitant]
  5. XANAX [Concomitant]
  6. SOMA [Concomitant]

REACTIONS (1)
  - DRUG INEFFECTIVE [None]
